FAERS Safety Report 7344106-6 (Version None)
Quarter: 2011Q1

REPORT INFORMATION
  Report Type: 
  Country: None (occurrence: None)
  Receive Date: 20110310
  Receipt Date: 20100616
  Transmission Date: 20110831
  Serious: No
  Sender: FDA-Public Use
  Company Number: A0865486A

PATIENT
  Age: 56 Year
  Sex: Female

DRUGS (1)
  1. NICORETTE (MINT) [Suspect]
     Dates: start: 20100613, end: 20100613

REACTIONS (4)
  - NAUSEA [None]
  - DIZZINESS [None]
  - TREMOR [None]
  - DIPLOPIA [None]
